FAERS Safety Report 17949953 (Version 1)
Quarter: 2020Q2

REPORT INFORMATION
  Report Type: Spontaneous
  Country: US (occurrence: US)
  Receive Date: 20200626
  Receipt Date: 20200626
  Transmission Date: 20200714
  Serious: No
  Sender: FDA-Public Use
  Company Number: US-JNJFOC-20200613073

PATIENT

DRUGS (2)
  1. STELARA [Suspect]
     Active Substance: USTEKINUMAB
     Indication: RECTAL HAEMORRHAGE
  2. STELARA [Suspect]
     Active Substance: USTEKINUMAB
     Indication: COLITIS
     Dosage: STRENGTH 90 MG/ML
     Route: 058

REACTIONS (4)
  - Product use in unapproved indication [Unknown]
  - Needle issue [Unknown]
  - Device malfunction [Unknown]
  - Off label use [Unknown]
